FAERS Safety Report 5423226-7 (Version None)
Quarter: 2007Q3

REPORT INFORMATION
  Report Type: 
  Country: None (occurrence: None)
  Receive Date: 20070730
  Receipt Date: 20070129
  Transmission Date: 20080115
  Serious: Yes (Life-Threatening, Other)
  Sender: FDA-Public Use
  Company Number: 200710111BWH

PATIENT
  Age: 29 Year
  Sex: Male

DRUGS (1)
  1. AVELOX [Suspect]
     Indication: UPPER RESPIRATORY TRACT INFECTION
     Dosage: ORAL
     Route: 048
     Dates: start: 20061201, end: 20070108

REACTIONS (9)
  - ABDOMINAL PAIN [None]
  - ANAPHYLACTIC REACTION [None]
  - DIARRHOEA [None]
  - DYSPHAGIA [None]
  - DYSPNOEA [None]
  - ERYTHEMA [None]
  - SWELLING [None]
  - SWELLING FACE [None]
  - WHEEZING [None]
